FAERS Safety Report 9929081 (Version 5)
Quarter: 2014Q3

REPORT INFORMATION
  Report Type: Report from Study
  Country: BR (occurrence: BR)
  Receive Date: 20140227
  Receipt Date: 20140815
  Transmission Date: 20150326
  Serious: Yes (Other)
  Sender: FDA-Public Use
  Company Number: PHHY2014BR021611

PATIENT
  Sex: Female
  Weight: 70 kg

DRUGS (6)
  1. PURAN [Concomitant]
     Active Substance: LEVOTHYROXINE SODIUM
     Dosage: 25 UG, ON SUNDAYS (1 TABLET)
  2. SANDOSTATIN LAR DEPOT [Suspect]
     Active Substance: OCTREOTIDE ACETATE
     Dosage: 20 MG, QMO, MONTHLY
     Route: 030
  3. SANDOSTATIN LAR DEPOT [Suspect]
     Active Substance: OCTREOTIDE ACETATE
     Indication: BLOOD GROWTH HORMONE ABNORMAL
     Dosage: 20 MG, EVERY 28 DAYS
     Route: 030
     Dates: start: 2007
  4. PURAN [Concomitant]
     Active Substance: LEVOTHYROXINE SODIUM
     Indication: HYPOTHYROIDISM
     Dosage: 150 UG, FROM MON TO SUN (1 TABLET)
     Dates: start: 2006
  5. SANDOSTATIN LAR DEPOT [Suspect]
     Active Substance: OCTREOTIDE ACETATE
     Indication: ACROMEGALY
     Dosage: 20 MG, EVERY 2 OR 3 MONTHS
     Route: 030
     Dates: start: 2006
  6. PURAN [Concomitant]
     Active Substance: LEVOTHYROXINE SODIUM
     Dosage: 150 UG, DAILY

REACTIONS (24)
  - Thyroid neoplasm [Not Recovered/Not Resolved]
  - Thyroglobulin increased [Not Recovered/Not Resolved]
  - Carotid artery disease [Not Recovered/Not Resolved]
  - Arthralgia [Recovered/Resolved]
  - Muscle disorder [Unknown]
  - Headache [Recovered/Resolved]
  - Weight increased [Unknown]
  - Blood growth hormone abnormal [Unknown]
  - Asphyxia [Recovered/Resolved]
  - Blood calcium increased [Unknown]
  - Calculus bladder [Recovered/Resolved]
  - Limb deformity [Recovering/Resolving]
  - Bone erosion [Unknown]
  - Gait disturbance [Recovering/Resolving]
  - Thyroid cancer [Recovering/Resolving]
  - Osteoarthritis [Not Recovered/Not Resolved]
  - Nephrolithiasis [Recovered/Resolved]
  - Local swelling [Recovered/Resolved]
  - Cholelithiasis [Recovered/Resolved]
  - Hand deformity [Recovering/Resolving]
  - Pituitary tumour recurrent [Unknown]
  - Spinal deformity [Not Recovered/Not Resolved]
  - Pain in extremity [Recovered/Resolved]
  - Drug ineffective [Unknown]

NARRATIVE: CASE EVENT DATE: 2006
